FAERS Safety Report 6301733-2 (Version None)
Quarter: 2009Q3

REPORT INFORMATION
  Report Type: 
  Country: None (occurrence: None)
  Receive Date: 20090807
  Receipt Date: 20090728
  Transmission Date: 20100115
  Serious: No
  Sender: FDA-Public Use
  Company Number: US-JNJFOC-20090708888

PATIENT
  Sex: Female
  Weight: 75.75 kg

DRUGS (9)
  1. SIMPONI [Suspect]
     Indication: RHEUMATOID ARTHRITIS
     Route: 058
  2. CODEINE [Concomitant]
  3. CYMBALTA [Concomitant]
  4. DARVOCET [Concomitant]
  5. TRAMADOL HCL [Concomitant]
  6. POTASSIUM CHLORIDE [Concomitant]
  7. PREDNISONE [Concomitant]
     Dosage: TAPPERING DOSE
  8. PREDNISONE [Concomitant]
     Dosage: TAPPERING DOSE
  9. SPIRIVA [Concomitant]

REACTIONS (6)
  - BACK PAIN [None]
  - BONE PAIN [None]
  - DEVICE FAILURE [None]
  - INAPPROPRIATE SCHEDULE OF DRUG ADMINISTRATION [None]
  - INJECTION SITE HAEMATOMA [None]
  - INJECTION SITE HAEMORRHAGE [None]
